FAERS Safety Report 13533450 (Version 2)
Quarter: 2017Q2

REPORT INFORMATION
  Report Type: Spontaneous
  Country: DE (occurrence: DE)
  Receive Date: 20170510
  Receipt Date: 20170515
  Transmission Date: 20170830
  Serious: Yes (Other)
  Sender: FDA-Public Use
  Company Number: DE-ASCEND THERAPEUTICS-2020541

PATIENT
  Age: 72 Year
  Sex: Female

DRUGS (2)
  1. ESTROGEL [Suspect]
     Active Substance: ESTRADIOL
     Indication: OSTEOPOROSIS PROPHYLAXIS
     Route: 062
  2. UTROGEST (PROGESTERONE) [Suspect]
     Active Substance: PROGESTERONE

REACTIONS (3)
  - Product use issue [None]
  - Myocardial infarction [Unknown]
  - Product use in unapproved indication [None]
